FAERS Safety Report 8929363 (Version 1)
Quarter: 2012Q4

REPORT INFORMATION
  Report Type: 
  Country: CA (occurrence: CA)
  Receive Date: 20121127
  Receipt Date: 20121127
  Transmission Date: 20130627
  Serious: Yes (Death)
  Sender: FDA-Public Use
  Company Number: CA-CELGENEUS-028-21660-12113059

PATIENT
  Sex: Female

DRUGS (1)
  1. ABRAXANE [Suspect]
     Indication: METASTATIC CARCINOMA OF THE BLADDER
     Dosage: 260 milligram/sq. meter
     Route: 041

REACTIONS (1)
  - Metastatic carcinoma of the bladder [Fatal]
